FAERS Safety Report 9423325 (Version 2)
Quarter: 2013Q3

REPORT INFORMATION
  Report Type: Report from Study
  Country: US (occurrence: US)
  Receive Date: 20130726
  Receipt Date: 20130807
  Transmission Date: 20140515
  Serious: Yes (Life-Threatening, Hospitalization, Other)
  Sender: FDA-Public Use
  Company Number: US-ABBOTT-13P-163-1124832-00

PATIENT
  Age: 53 Year
  Sex: Male
  Weight: 94.89 kg

DRUGS (7)
  1. HUMIRA [Suspect]
     Indication: PSORIASIS
     Dosage: ONE DOSE
     Route: 058
     Dates: start: 20081112, end: 20081112
  2. HUMIRA [Suspect]
     Dosage: ONE DOSE
     Dates: start: 20081114, end: 20081114
  3. HUMIRA [Suspect]
     Dates: start: 20081121, end: 201302
  4. HUMIRA [Suspect]
     Dates: start: 20130225
  5. MULTIVITAMIN [Concomitant]
     Indication: PRODUCT USED FOR UNKNOWN INDICATION
  6. FISH OIL [Concomitant]
     Indication: PRODUCT USED FOR UNKNOWN INDICATION
  7. SIMVASTATIN [Concomitant]
     Indication: BLOOD CHOLESTEROL INCREASED

REACTIONS (6)
  - Circulatory collapse [Recovered/Resolved]
  - Myocardial infarction [Recovered/Resolved]
  - Cardiac arrest [Recovered/Resolved]
  - Memory impairment [Not Recovered/Not Resolved]
  - Cardiac disorder [Recovered/Resolved]
  - Glucose tolerance impaired [Not Recovered/Not Resolved]
